FAERS Safety Report 9698713 (Version 2)
Quarter: 2013Q4

REPORT INFORMATION
  Report Type: Spontaneous
  Country: NZ (occurrence: NZ)
  Receive Date: 20131120
  Receipt Date: 20131127
  Transmission Date: 20140711
  Serious: Yes (Other)
  Sender: FDA-Public Use
  Company Number: NZ-PFIZER INC-2013330182

PATIENT
  Age: 69 Year
  Sex: Female

DRUGS (5)
  1. AMIODARONE HCL [Suspect]
     Dosage: UNK
     Route: 048
  2. TERBINAFINE [Suspect]
     Dosage: UNK
     Route: 048
  3. FLUCLOXACILLIN [Suspect]
     Dosage: UNK
     Route: 048
  4. ATORVASTATIN [Concomitant]
     Dosage: UNK
  5. METOPROLOL [Concomitant]
     Dosage: UNK

REACTIONS (3)
  - Neutropenia [Unknown]
  - Asthenia [Unknown]
  - Diarrhoea [Unknown]
